FAERS Safety Report 12168039 (Version 1)
Quarter: 2016Q1

REPORT INFORMATION
  Report Type: Spontaneous
  Country: US (occurrence: None)
  Receive Date: 20160309
  Receipt Date: 20160309
  Transmission Date: 20160526
  Serious: No
  Sender: FDA-Public Use
  Company Number: None

PATIENT

DRUGS (1)
  1. CLONAZAPAM [Suspect]
     Active Substance: CLONAZEPAM

REACTIONS (9)
  - Blepharospasm [None]
  - Eating disorder [None]
  - Withdrawal syndrome [None]
  - Hypothyroidism [None]
  - Dry eye [None]
  - Hyperthyroidism [None]
  - Speech disorder [None]
  - Depression [None]
  - Photophobia [None]
